FAERS Safety Report 7083019-4 (Version None)
Quarter: 2010Q4

REPORT INFORMATION
  Report Type: 
  Country: None (occurrence: None)
  Receive Date: 20101026
  Receipt Date: 20101018
  Transmission Date: 20110411
  Serious: Yes (Death, Other)
  Sender: FDA-Public Use
  Company Number: 2010EU002215

PATIENT
  Age: 63 Year
  Sex: Female

DRUGS (3)
  1. TACROLIMUS [Suspect]
     Dates: end: 20100210
  2. BELATACEPT (BELATACEPT) [Suspect]
     Indication: LIVER TRANSPLANT
     Dates: end: 20090923
  3. MYCOPHENOLATE MOFETIL [Suspect]

REACTIONS (3)
  - DRUG LEVEL INCREASED [None]
  - DRUG TOXICITY [None]
  - SOMNOLENCE [None]
